FAERS Safety Report 9538293 (Version 2)
Quarter: 2013Q3

REPORT INFORMATION
  Report Type: Spontaneous
  Country: CA (occurrence: CA)
  Receive Date: 20130920
  Receipt Date: 20130920
  Transmission Date: 20140515
  Serious: Yes (Hospitalization, Other)
  Sender: FDA-Public Use
  Company Number: CA-AMGEN-CANSP2013061040

PATIENT
  Age: 72 Year
  Sex: Male
  Weight: 122.45 kg

DRUGS (8)
  1. ENBREL [Suspect]
     Indication: PSORIASIS
     Dosage: 50 MG, 2 TIMES/WK
     Route: 058
     Dates: start: 20090526, end: 201210
  2. COVERSYL                           /00790702/ [Concomitant]
     Indication: HYPERTENSION
     Dosage: UNK UNK, QD
     Route: 048
  3. RANITIDINE [Concomitant]
     Indication: HYPERCHOLESTEROLAEMIA
     Dosage: UNK, QD
     Route: 048
  4. SORIATANE [Concomitant]
     Indication: PSORIASIS
     Dosage: 25 MG, QD
     Route: 048
     Dates: start: 20130508, end: 20130605
  5. SORIATANE [Concomitant]
     Dosage: 50 MG, QD
     Route: 048
     Dates: start: 20130606
  6. DOVOBET [Concomitant]
     Indication: PSORIASIS
     Dosage: UNK UNK, QMO
     Route: 061
     Dates: start: 20130111
  7. SALICYLIC ACID [Concomitant]
     Dosage: 1 %, QD
  8. BETADERM                           /00008501/ [Concomitant]
     Indication: PSORIASIS
     Dosage: UNK, PRN
     Route: 061
     Dates: start: 201101

REACTIONS (1)
  - Colon cancer [Recovered/Resolved]
